FAERS Safety Report 5036320-X (Version None)
Quarter: 2006Q2

REPORT INFORMATION
  Report Type: 
  Country: None (occurrence: None)
  Receive Date: 20060601
  Receipt Date: 20060426
  Transmission Date: 20061013
  Serious: No
  Sender: FDA-Public Use
  Company Number: US200604004515

PATIENT
  Age: 53 Year
  Sex: Male

DRUGS (4)
  1. CYMBALTA [Suspect]
     Indication: STRESS
     Dosage: 30 MG, DAILY (1/D)
     Dates: start: 20060425, end: 20060425
  2. NOVOLOG (INSULIN ASPARTATE) [Concomitant]
  3. HUMULIN (INSULIN HUMAN, INSULIN ISOPHANE, HUMAN BIOSYNTHETIC) [Concomitant]
  4. XANAX /USA/ (ALPRAZOLAM) [Concomitant]

REACTIONS (4)
  - DISTURBANCE IN ATTENTION [None]
  - FATIGUE [None]
  - FEELING ABNORMAL [None]
  - SOMNOLENCE [None]
